FAERS Safety Report 9712743 (Version 1)
Quarter: 2013Q4

REPORT INFORMATION
  Report Type: Spontaneous
  Country: US (occurrence: US)
  Receive Date: 20131126
  Receipt Date: 20131126
  Transmission Date: 20140711
  Serious: No
  Sender: FDA-Public Use
  Company Number: US-BRISTOL-MYERS SQUIBB COMPANY-19224419

PATIENT
  Age: 70 Year
  Sex: Male
  Weight: 81.63 kg

DRUGS (4)
  1. BYDUREON [Suspect]
  2. JANUMET [Suspect]
  3. GLIPIZIDE [Suspect]
  4. ACTOS [Concomitant]

REACTIONS (1)
  - Blood glucose increased [Unknown]
